FAERS Safety Report 6407007-3 (Version None)
Quarter: 2009Q4

REPORT INFORMATION
  Report Type: 
  Country: None (occurrence: None)
  Receive Date: 20091020
  Receipt Date: 20091006
  Transmission Date: 20100525
  Serious: Yes (Hospitalization)
  Sender: FDA-Public Use
  Company Number: PHHY2009GB43097

PATIENT
  Sex: Female

DRUGS (5)
  1. EXJADE [Suspect]
     Indication: IRON OVERLOAD
     Dosage: UNK
     Dates: start: 20090806
  2. PARACETAMOL [Concomitant]
     Dosage: UNK
  3. DESFERAL [Concomitant]
     Dosage: UNK
  4. DIHYDROCODEINE BITARTRATE INJ [Concomitant]
     Dosage: UNK
  5. PENICILLIN [Concomitant]
     Dosage: UNK

REACTIONS (1)
  - SICKLE CELL ANAEMIA WITH CRISIS [None]
